FAERS Safety Report 15752026 (Version 1)
Quarter: 2018Q4

REPORT INFORMATION
  Report Type: Spontaneous
  Country: DE (occurrence: DE)
  Receive Date: 20181221
  Receipt Date: 20181221
  Transmission Date: 20190205
  Serious: Yes (Death, Other)
  Sender: FDA-Public Use
  Company Number: PHHY2018DE062105

PATIENT
  Age: 58 Year
  Sex: Female
  Weight: 54 kg

DRUGS (61)
  1. BEN-U-RON [Suspect]
     Active Substance: ACETAMINOPHEN
     Indication: PYREXIA
     Dosage: UNK
     Route: 054
     Dates: start: 19950117, end: 19950117
  2. ERYPO (EPOETIN ALFA) [Suspect]
     Active Substance: ERYTHROPOIETIN
     Dosage: 2000 IU, QD
     Route: 058
     Dates: start: 19950114, end: 19950114
  3. PEPDUL [Concomitant]
     Active Substance: FAMOTIDINE
     Indication: ULCER
     Dosage: 1 DF, QD
     Route: 048
     Dates: end: 19950117
  4. ANTRA [Concomitant]
     Active Substance: OMEPRAZOLE
     Indication: CONSTIPATION
  5. SODIUM HYDROGEN CARBONATE [Concomitant]
     Active Substance: SODIUM BICARBONATE
     Indication: ACIDOSIS
     Dosage: UNK
     Route: 042
     Dates: start: 19950118, end: 19950118
  6. SODIUM CITRATE. [Concomitant]
     Active Substance: SODIUM CITRATE
     Indication: METABOLIC ACIDOSIS
     Dosage: 4 DF, QD
     Route: 048
     Dates: start: 19950119, end: 19950131
  7. SODIUM CHLORIDE. [Concomitant]
     Active Substance: SODIUM CHLORIDE
     Indication: HYPONATRAEMIA
     Dosage: UNK
     Route: 042
     Dates: start: 19950117, end: 19950117
  8. ACETYLSALICYLIC ACID [Suspect]
     Active Substance: ASPIRIN
     Indication: ARRHYTHMIA
     Dosage: 1 DF, QD
     Route: 048
  9. ERYPO (EPOETIN ALFA) [Suspect]
     Active Substance: ERYTHROPOIETIN
     Indication: ANAEMIA
     Dosage: 2000 IU, QD
     Route: 058
     Dates: start: 19950103, end: 19950103
  10. ERYPO (EPOETIN ALFA) [Suspect]
     Active Substance: ERYTHROPOIETIN
     Dosage: 2000 IU, QD
     Route: 058
     Dates: start: 19950117, end: 19950117
  11. TAZOBAC [Suspect]
     Active Substance: PIPERACILLIN SODIUM\TAZOBACTAM SODIUM
     Dosage: 2 DF,QD
     Route: 042
  12. ANTRA [Concomitant]
     Active Substance: OMEPRAZOLE
     Indication: ULCER
     Dosage: 2 DF, QD
     Route: 048
     Dates: start: 19950118, end: 19950124
  13. ERYTHROCIN [Concomitant]
     Active Substance: ERYTHROMYCIN LACTOBIONATE
     Indication: INFECTION
     Dosage: 1 DF, QD (1 UG/LITRE)
     Route: 042
     Dates: start: 19950118, end: 19950118
  14. ARELIX HEXAL [Concomitant]
     Indication: HYPERTENSION
     Dosage: 1 DF, QD
     Route: 048
     Dates: start: 19941228, end: 19941228
  15. DULCOLAX NOS [Suspect]
     Active Substance: BISACODYL OR DOCUSATE SODIUM
     Indication: CONSTIPATION
     Dosage: UNK
     Route: 054
     Dates: start: 19950115, end: 19950115
  16. XANEF (ENALAPRIL MALEATE) [Suspect]
     Active Substance: ENALAPRIL MALEATE
     Indication: HYPERTENSION
     Dosage: 1 DF, QD (1 UG/LITRE)
     Route: 048
     Dates: start: 19941230, end: 19950124
  17. REMESTAN [Suspect]
     Active Substance: TEMAZEPAM
     Dosage: 1 DF,QD
     Route: 048
  18. ERYPO (EPOETIN ALFA) [Suspect]
     Active Substance: ERYTHROPOIETIN
     Dosage: 2000 IU, QD
     Route: 058
     Dates: start: 19950105, end: 19950105
  19. TRAMAL [Concomitant]
     Active Substance: TRAMADOL
     Indication: PAIN
     Dosage: UNK
     Route: 048
     Dates: start: 19950118, end: 19950121
  20. CALCIUM CITRATE [Concomitant]
     Active Substance: CALCIUM CITRATE
     Indication: METABOLIC ACIDOSIS
     Dosage: 4 DF, QD
     Route: 048
     Dates: start: 19950119
  21. ZANTAC [Concomitant]
     Active Substance: RANITIDINE HYDROCHLORIDE
     Indication: HYPERSENSITIVITY
     Dosage: UNK
     Route: 042
     Dates: start: 19950117, end: 19950117
  22. PASPERTIN [Concomitant]
     Indication: NAUSEA
     Dosage: UNK
     Route: 048
     Dates: start: 19941228, end: 19941228
  23. BISACODYL. [Suspect]
     Active Substance: BISACODYL
     Indication: CONSTIPATION
     Dosage: UNK
     Route: 054
     Dates: start: 19950115, end: 19950115
  24. ERYTHROPOIETIN HUMAN [Suspect]
     Active Substance: ERYTHROPOIETIN
     Dosage: 2000 IU, QD
     Route: 058
     Dates: start: 19950117, end: 19950117
  25. IMUREK [Suspect]
     Active Substance: AZATHIOPRINE
     Indication: SCLERODERMA
     Dosage: UNK
     Route: 048
     Dates: start: 19950113, end: 19950116
  26. LOPIRIN [Concomitant]
     Indication: HYPERTENSION
     Dosage: 1 DF, QD
     Route: 048
     Dates: start: 19941229, end: 19941229
  27. ADALAT [Concomitant]
     Active Substance: NIFEDIPINE
     Indication: HYPERTENSION
     Dosage: 1 DF, QD
     Route: 048
     Dates: start: 19941228, end: 19941228
  28. TEMGESIC [Concomitant]
     Active Substance: BUPRENORPHINE HYDROCHLORIDE
     Indication: PAIN
     Dosage: UNK
     Route: 060
     Dates: start: 19950124, end: 19950124
  29. NATRIUMHYDROGENCARBONAT [Concomitant]
     Active Substance: SODIUM BICARBONATE
     Indication: ACIDOSIS
     Dosage: UNK
     Route: 042
     Dates: start: 19950118, end: 19950118
  30. SODIUM CHLORIDE. [Concomitant]
     Active Substance: SODIUM CHLORIDE
     Dosage: UNK UNK,UNK
     Route: 042
     Dates: start: 19950117, end: 19950117
  31. FLUIMUCIL [Suspect]
     Active Substance: ACETYLCYSTEINE
     Indication: PRODUCT USED FOR UNKNOWN INDICATION
     Dosage: 3 DF, QD
     Route: 048
     Dates: start: 19950117, end: 19950118
  32. ERYTHROPOIETIN HUMAN [Suspect]
     Active Substance: ERYTHROPOIETIN
     Indication: ANAEMIA
     Dosage: 2000 IU, QD
     Route: 058
     Dates: start: 19950105, end: 19950105
  33. ERYTHROPOIETIN HUMAN [Suspect]
     Active Substance: ERYTHROPOIETIN
     Dosage: 2000 IU, QD
     Route: 058
     Dates: start: 19950303
  34. LASIX [Suspect]
     Active Substance: FUROSEMIDE
     Indication: RENAL FAILURE
     Dosage: 1 DF,QD
     Route: 048
     Dates: start: 19950113, end: 19950331
  35. METALCAPTASE [Suspect]
     Active Substance: PENICILLAMINE
     Indication: SCLERODERMA
     Dosage: UNK
     Route: 048
     Dates: start: 19941229, end: 19950124
  36. MONO EMBOLEX [Concomitant]
     Active Substance: CERTOPARIN SODIUM
     Indication: THROMBOSIS PROPHYLAXIS
     Dosage: 1 DF, QD
     Route: 058
  37. PEPDUL [Concomitant]
     Active Substance: FAMOTIDINE
     Dosage: 1 DF,QD
     Route: 048
  38. TELEBRIX [IOXITALAMATE MEGLUMINE,IOXITALAMATE MONOETHANOLAMINE] [Suspect]
     Active Substance: IOXITALAMATE MONOETHANOLAMINE\MEGLUMINE IOXITHALAMATE
     Indication: X-RAY
     Dosage: UNK
     Route: 048
     Dates: start: 19950115, end: 19950115
  39. ROHYPNOL [Suspect]
     Active Substance: FLUNITRAZEPAM
     Indication: SLEEP DISORDER
     Dosage: 1 DF, QD
     Route: 048
     Dates: start: 19950114, end: 19950123
  40. TRENTAL [Suspect]
     Active Substance: PENTOXIFYLLINE
     Indication: CARDIOVASCULAR DISORDER
     Dosage: 1200 MG, QD
     Route: 048
     Dates: start: 19950117, end: 19950124
  41. REMESTAN [Suspect]
     Active Substance: TEMAZEPAM
     Indication: SLEEP DISORDER
     Dosage: 1 DF, QD
     Route: 048
     Dates: start: 19950113
  42. TAZOBAC [Suspect]
     Active Substance: PIPERACILLIN SODIUM\TAZOBACTAM SODIUM
     Indication: INFECTION
     Dosage: 1 DF, QD
     Route: 042
     Dates: start: 19950101
  43. SAROTEN [Concomitant]
     Active Substance: AMITRIPTYLINE
     Indication: DEPRESSION
     Dosage: UNK
     Route: 048
     Dates: start: 19950124
  44. ERYTHROMYCIN. [Concomitant]
     Active Substance: ERYTHROMYCIN
     Indication: INFECTION
     Dosage: 2 DF, QD (1 UG/LITRE)
     Route: 042
     Dates: start: 19950118, end: 19950118
  45. DIFLUCAN [Concomitant]
     Active Substance: FLUCONAZOLE
     Indication: FUNGAL INFECTION
     Dosage: 200 MG, QD
     Route: 048
     Dates: start: 19950120, end: 19950124
  46. TAVEGIL [Concomitant]
     Active Substance: CLEMASTINE FUMARATE
     Indication: HYPERSENSITIVITY
     Dosage: UNK;
     Route: 042
     Dates: start: 19950117, end: 19950117
  47. SOLU-DECORTIN-H [Concomitant]
     Active Substance: PREDNISOLONE SODIUM SUCCINATE
     Indication: HYPERSENSITIVITY
     Dosage: UNK
     Route: 042
     Dates: start: 19950117, end: 19950117
  48. NEUPOGEN [Concomitant]
     Active Substance: FILGRASTIM
     Indication: LEUKOPENIA
     Dosage: UNK
     Route: 058
     Dates: start: 19950124, end: 19950124
  49. SODIUM CITRATE. [Concomitant]
     Active Substance: SODIUM CITRATE
     Dosage: 4 DF, UNK
     Route: 048
     Dates: start: 19950119, end: 19950119
  50. CLEMASTINE [Concomitant]
     Active Substance: CLEMASTINE
     Indication: HYPERSENSITIVITY
     Dosage: UNK
     Route: 042
     Dates: start: 19950117, end: 19950117
  51. ERYTHROPOIETIN HUMAN [Suspect]
     Active Substance: ERYTHROPOIETIN
     Dosage: 2000 IU, QD
     Route: 058
     Dates: start: 19950114, end: 19950114
  52. ERYPO (EPOETIN ALFA) [Suspect]
     Active Substance: ERYTHROPOIETIN
     Dosage: 2000 IU, QD
     Route: 058
     Dates: start: 19950107, end: 19950107
  53. ERYPO (EPOETIN ALFA) [Suspect]
     Active Substance: ERYTHROPOIETIN
     Dosage: 2000 IU, QD
     Route: 058
     Dates: start: 19950110, end: 19950110
  54. URBASON [Concomitant]
     Active Substance: METHYLPREDNISOLONE
     Indication: SCLERODERMA
     Dosage: UNK
     Route: 048
  55. IMODIUM [Concomitant]
     Active Substance: LOPERAMIDE HYDROCHLORIDE
     Indication: DIARRHOEA
     Dosage: UNK
     Route: 048
     Dates: start: 19950118, end: 19950119
  56. FLUIMUCIL [Suspect]
     Active Substance: ACETYLCYSTEINE
     Dosage: 3 DF, QD
     Route: 048
     Dates: start: 19950120
  57. PURSENNIDE (SENNA ALEXANDRINA LEAF) [Suspect]
     Active Substance: SENNA LEAF
     Indication: CONSTIPATION
     Route: 048
     Dates: start: 19950113, end: 19950114
  58. ERYTHROPOIETIN HUMAN [Suspect]
     Active Substance: ERYTHROPOIETIN
     Dosage: 2000 IU, QD
     Route: 058
     Dates: start: 19950110, end: 19950110
  59. AUGMENTAN [Suspect]
     Active Substance: AMOXICILLIN\CLAVULANATE POTASSIUM
     Indication: INFECTION
     Dosage: 1 DF, QD
     Route: 048
     Dates: start: 19950117, end: 19950117
  60. NOVALGIN (METAMIZOLE SODIUM) [Suspect]
     Active Substance: METAMIZOLE SODIUM
     Indication: PYREXIA
     Dosage: UNK
     Route: 042
     Dates: start: 19941228, end: 19941228
  61. ISOPTIN [Concomitant]
     Active Substance: VERAPAMIL HYDROCHLORIDE
     Indication: ARRHYTHMIA
     Dosage: 3 DF, QD
     Route: 048
     Dates: start: 19941228, end: 19950124

REACTIONS (14)
  - Pneumonia [Unknown]
  - Stevens-Johnson syndrome [Not Recovered/Not Resolved]
  - Renal failure [Fatal]
  - Off label use [Fatal]
  - Blood lactate dehydrogenase increased [Unknown]
  - Leukocytosis [Unknown]
  - Blister [Unknown]
  - Pruritus [Unknown]
  - Toxic epidermal necrolysis [Fatal]
  - Brain injury [Fatal]
  - Blood creatinine increased [Unknown]
  - Lymphocytosis [Unknown]
  - Rash [Unknown]
  - Blood urea increased [Unknown]

NARRATIVE: CASE EVENT DATE: 19950117
